FAERS Safety Report 16196759 (Version 3)
Quarter: 2020Q3

REPORT INFORMATION
  Report Type: Other
  Country: CA (occurrence: CA)
  Receive Date: 20190415
  Receipt Date: 20200814
  Transmission Date: 20201102
  Serious: Yes (Other)
  Sender: FDA-Public Use
  Company Number: CA-ROCHE-2298712

PATIENT
  Sex: Male
  Weight: 130 kg

DRUGS (24)
  1. VITAMIN C [Concomitant]
     Active Substance: ASCORBIC ACID
     Route: 048
  2. VITAMIN C [Concomitant]
     Active Substance: ASCORBIC ACID
  3. VIT D [Concomitant]
     Active Substance: VITAMIN D NOS
     Route: 048
  4. METFORMIN [Concomitant]
     Active Substance: METFORMIN HYDROCHLORIDE
     Route: 048
  5. GLUCOSAMINE [Concomitant]
     Active Substance: GLUCOSAMINE
  6. ZOLOFT [Concomitant]
     Active Substance: SERTRALINE HYDROCHLORIDE
  7. IMODIUM [Concomitant]
     Active Substance: LOPERAMIDE HYDROCHLORIDE
  8. CALCIUM [Concomitant]
     Active Substance: CALCIUM
     Route: 048
  9. BENADRYL [Concomitant]
     Active Substance: DIPHENHYDRAMINE HYDROCHLORIDE
     Route: 048
     Dates: start: 20190821
  10. ATORVASTATIN [Concomitant]
     Active Substance: ATORVASTATIN
     Route: 048
  11. CELLCEPT [Suspect]
     Active Substance: MYCOPHENOLATE MOFETIL\MYCOPHENOLATE MOFETIL HYDROCHLORIDE
     Route: 048
  12. RITUXAN [Suspect]
     Active Substance: RITUXIMAB
     Indication: MYASTHENIA GRAVIS
     Dosage: DAY 1, DAY 15,ONGOING
     Route: 042
     Dates: start: 20190821
  13. MICARDIS [Concomitant]
     Active Substance: TELMISARTAN
     Dosage: 80/25 MG
     Route: 048
  14. ATORVASTATIN [Concomitant]
     Active Substance: ATORVASTATIN
  15. TYLENOL [Concomitant]
     Active Substance: ACETAMINOPHEN
     Route: 048
     Dates: start: 20190821
  16. SOLU?MEDROL [Concomitant]
     Active Substance: METHYLPREDNISOLONE SODIUM SUCCINATE
     Route: 042
     Dates: start: 20190821
  17. PREDNISONE. [Concomitant]
     Active Substance: PREDNISONE
     Dosage: TAPER 1MG PER MONTH TO 5MG DAILY
     Route: 048
  18. ASPIRIN. [Concomitant]
     Active Substance: ASPIRIN
  19. ASPIRIN. [Concomitant]
     Active Substance: ASPIRIN
  20. IVIGLOB EX [Concomitant]
     Active Substance: HUMAN IMMUNOGLOBULIN G
  21. TELMISARTAN/HYDROCHLOROTHIAZIDE [Concomitant]
     Active Substance: HYDROCHLOROTHIAZIDE\TELMISARTAN
  22. CELLCEPT [Suspect]
     Active Substance: MYCOPHENOLATE MOFETIL\MYCOPHENOLATE MOFETIL HYDROCHLORIDE
     Indication: OCULAR MYASTHENIA
     Dosage: ONGOING?YES
     Route: 065
  23. MESTINON [Concomitant]
     Active Substance: PYRIDOSTIGMINE BROMIDE
     Route: 048
  24. SERTRALINE [Concomitant]
     Active Substance: SERTRALINE HYDROCHLORIDE
     Dosage: 100 MG DAILY.

REACTIONS (13)
  - Hyperglycaemia [Unknown]
  - Product use in unapproved indication [Unknown]
  - Blood glucose increased [Unknown]
  - Drug ineffective [Unknown]
  - Off label use [Unknown]
  - Affect lability [Unknown]
  - Lymphocyte count increased [Unknown]
  - Weight increased [Unknown]
  - White blood cell count increased [Unknown]
  - Strabismus [Unknown]
  - Gaze palsy [Unknown]
  - Speech disorder [Unknown]
  - Deep vein thrombosis [Unknown]
